FAERS Safety Report 8010386-7 (Version None)
Quarter: 2011Q4

REPORT INFORMATION
  Report Type: 
  Country: None (occurrence: None)
  Receive Date: 20111222
  Receipt Date: 20111215
  Transmission Date: 20120403
  Serious: Yes (Hospitalization)
  Sender: FDA-Public Use
  Company Number: 2011HGS-002991

PATIENT
  Age: 28 Year
  Sex: Female
  Weight: 72.5755 kg

DRUGS (9)
  1. FUROSEMIDE [Concomitant]
  2. PLAQUENIL (HYDROXYCHLOROQUINE SULFATE) (HYDROXYCHLOROQUINE SULFATE) [Concomitant]
  3. COUMADIN [Concomitant]
  4. BENLYSTA [Suspect]
     Indication: SYSTEMIC LUPUS ERYTHEMATOSUS
     Dosage: 10 MG/KG, 1 IN 28 D, INTRAVENOUS
     Route: 042
     Dates: start: 20111121
  5. PREDNISONE [Concomitant]
  6. VITAMIN D (ERGOCALCIFEROL (ERGOCALCIFEROL) [Concomitant]
  7. CELLCEPT (MYCOPHENOLATE MOFETIL0 (MYCOPHENOLATE MOFETIL) [Concomitant]
  8. COREG (CARVEDILOL) (CARVEDILOL) [Concomitant]
  9. IRON SUPPLEMENT (IRON) (IRON) [Concomitant]

REACTIONS (1)
  - RENAL FAILURE ACUTE [None]
